FAERS Safety Report 6199317-2 (Version None)
Quarter: 2009Q2

REPORT INFORMATION
  Report Type: 
  Country: None (occurrence: None)
  Receive Date: 20090520
  Receipt Date: 20090520
  Transmission Date: 20091009
  Serious: No
  Sender: FDA-Public Use
  Company Number: None

PATIENT
  Age: 68 Year
  Sex: Male
  Weight: 90.7194 kg

DRUGS (1)
  1. LIPITOR [Suspect]
     Indication: BLOOD CHOLESTEROL

REACTIONS (8)
  - ACTIVITIES OF DAILY LIVING IMPAIRED [None]
  - DIALYSIS [None]
  - IMPAIRED DRIVING ABILITY [None]
  - INNER EAR DISORDER [None]
  - LOSS OF EMPLOYMENT [None]
  - MUSCLE ATROPHY [None]
  - VERTIGO [None]
  - WALKING AID USER [None]
